FAERS Safety Report 19520241 (Version 1)
Quarter: 2021Q3

REPORT INFORMATION
  Report Type: Spontaneous
  Country: CN (occurrence: CN)
  Receive Date: 20210712
  Receipt Date: 20210712
  Transmission Date: 20211014
  Serious: No
  Sender: FDA-Public Use
  Company Number: CN-ASTRAZENECA-2021A551141

PATIENT
  Age: 61 Year
  Sex: Male
  Weight: 85 kg

DRUGS (5)
  1. FORXIGA [Suspect]
     Active Substance: DAPAGLIFLOZIN
     Indication: BLOOD GLUCOSE INCREASED
     Route: 048
     Dates: start: 20210507, end: 20210516
  2. PIOGLITAZONE. [Concomitant]
     Active Substance: PIOGLITAZONE
     Dosage: 30MG QD
     Route: 048
  3. HUMULIN NOS [Concomitant]
     Active Substance: INSULIN HUMAN
     Dosage: 20 IU IN THE MORNING AND 12 IU IN THE EVENING
     Dates: end: 20210511
  4. VICTOZA [Concomitant]
     Active Substance: LIRAGLUTIDE
     Indication: BLOOD GLUCOSE INCREASED
     Route: 058
     Dates: start: 20210511, end: 20210516
  5. ACARBOSE. [Concomitant]
     Active Substance: ACARBOSE
     Dosage: TABLETS 100 MG TID
     Route: 048

REACTIONS (4)
  - Ketosis [Recovering/Resolving]
  - Hypoglycaemia [Unknown]
  - Decreased appetite [Unknown]
  - Hypophagia [Unknown]

NARRATIVE: CASE EVENT DATE: 20210512
